FAERS Safety Report 14786612 (Version 2)
Quarter: 2018Q4

REPORT INFORMATION
  Report Type: Report from Study
  Country: US (occurrence: US)
  Receive Date: 20180420
  Receipt Date: 20181203
  Transmission Date: 20190204
  Serious: No
  Sender: FDA-Public Use
  Company Number: US-SA-2018SA079590

PATIENT
  Age: 74 Year
  Sex: Male

DRUGS (1)
  1. SARILUMAB [Suspect]
     Active Substance: SARILUMAB
     Indication: RHEUMATOID ARTHRITIS
     Dosage: 200 MG, QOW
     Dates: start: 20180101

REACTIONS (2)
  - Injection site erythema [Recovered/Resolved]
  - Injection site pain [Recovering/Resolving]
